FAERS Safety Report 25910760 (Version 3)
Quarter: 2025Q4

REPORT INFORMATION
  Report Type: Spontaneous
  Country: JP (occurrence: JP)
  Receive Date: 20251013
  Receipt Date: 20251118
  Transmission Date: 20260117
  Serious: Yes (Other)
  Sender: AMGEN
  Company Number: JP-AMGEN-JPNSP2025199594

PATIENT
  Age: 8 Decade
  Sex: Male

DRUGS (1)
  1. BLINCYTO [Suspect]
     Active Substance: BLINATUMOMAB
     Indication: Acute lymphocytic leukaemia
     Dosage: UNK UNK, CONTINUING, 24-HOUR CONTINUOUS INTRAVENOUS INFUSION, DRIP INFUSION
     Route: 040

REACTIONS (1)
  - Acute lymphocytic leukaemia recurrent [Recovering/Resolving]
